FAERS Safety Report 11250744 (Version 2)
Quarter: 2015Q3

REPORT INFORMATION
  Report Type: Spontaneous
  Country: US (occurrence: US)
  Receive Date: 20150708
  Receipt Date: 20150803
  Transmission Date: 20151125
  Serious: Yes (Hospitalization)
  Sender: FDA-Public Use
  Company Number: US-ELI_LILLY_AND_COMPANY-US201011003780

PATIENT
  Age: 35 Year
  Sex: Male

DRUGS (3)
  1. THORAZINE [Concomitant]
     Active Substance: CHLORPROMAZINE
  2. ZYPREXA RELPREVV [Suspect]
     Active Substance: OLANZAPINE PAMOATE
     Indication: SCHIZOPHRENIA
     Dosage: 210 MG, UNK
     Route: 030
  3. CLONOPIN [Concomitant]
     Active Substance: CLONAZEPAM

REACTIONS (2)
  - Drug ineffective [Unknown]
  - Schizophrenia [Unknown]
